FAERS Safety Report 4840666-5 (Version None)
Quarter: 2005Q4

REPORT INFORMATION
  Report Type: 
  Country: None (occurrence: None)
  Receive Date: 20051102
  Receipt Date: 20050822
  Transmission Date: 20060501
  Serious: No
  Sender: FDA-Public Use
  Company Number: 200511156BWH

PATIENT
  Age: 62 Year
  Sex: Male

DRUGS (4)
  1. LEVITRA [Suspect]
     Dosage: 5 MG, TOTAL DAILY, ORAL
     Route: 048
     Dates: start: 20040801
  2. LIPITOR [Concomitant]
  3. CARDIZEM [Concomitant]
  4. ACCUPRIL [Concomitant]

REACTIONS (2)
  - TESTICULAR DISORDER [None]
  - TESTICULAR PAIN [None]
